FAERS Safety Report 20068901 (Version 2)
Quarter: 2021Q4

REPORT INFORMATION
  Report Type: Spontaneous
  Country: GB (occurrence: GB)
  Receive Date: 20211115
  Receipt Date: 20211129
  Transmission Date: 20220303
  Serious: Yes (Other)
  Sender: FDA-Public Use
  Company Number: GB-BIOGEN-2021BI01051550

PATIENT
  Sex: Female

DRUGS (1)
  1. SPINRAZA [Suspect]
     Active Substance: NUSINERSEN
     Indication: Spinal muscular atrophy
     Route: 065
     Dates: start: 2017

REACTIONS (5)
  - Cardiac arrest [Unknown]
  - Brain injury [Unknown]
  - Spinal muscular atrophy [Unknown]
  - Drug ineffective [Unknown]
  - Scoliosis [Unknown]

NARRATIVE: CASE EVENT DATE: 20200401
